FAERS Safety Report 8483456-7 (Version None)
Quarter: 2012Q3

REPORT INFORMATION
  Report Type: 
  Country: None (occurrence: None)
  Receive Date: 20120702
  Receipt Date: 20120627
  Transmission Date: 20120928
  Serious: Yes (Hospitalization, Other)
  Sender: FDA-Public Use
  Company Number: CA-ROCHE-GNE293874

PATIENT
  Sex: Male
  Weight: 109.12 kg

DRUGS (12)
  1. XOLAIR [Suspect]
     Indication: ASTHMA
     Route: 058
     Dates: start: 20080205
  2. XOLAIR [Suspect]
     Route: 058
     Dates: start: 20091027
  3. XOLAIR [Suspect]
     Route: 065
     Dates: start: 20091222
  4. SPIRIVA [Concomitant]
     Indication: PRODUCT USED FOR UNKNOWN INDICATION
     Dosage: UNK
  5. XOLAIR [Suspect]
     Dates: start: 20100302
  6. XOLAIR [Suspect]
     Route: 058
     Dates: start: 20091124
  7. XOLAIR [Suspect]
     Route: 058
     Dates: start: 20091208
  8. XOLAIR [Suspect]
     Route: 058
     Dates: start: 20100330
  9. SINGULAIR [Concomitant]
     Indication: PRODUCT USED FOR UNKNOWN INDICATION
     Dosage: UNK
  10. SYMBICORT [Concomitant]
     Indication: PRODUCT USED FOR UNKNOWN INDICATION
     Dosage: UNK
  11. VENTOLIN [Concomitant]
     Indication: PRODUCT USED FOR UNKNOWN INDICATION
     Dosage: UNK
  12. ALVESCO [Concomitant]
     Indication: PRODUCT USED FOR UNKNOWN INDICATION
     Dosage: UNK

REACTIONS (15)
  - DYSPNOEA [None]
  - OROPHARYNGEAL PAIN [None]
  - BLOOD PRESSURE DECREASED [None]
  - NASOPHARYNGITIS [None]
  - INFLUENZA [None]
  - SPUTUM DISCOLOURED [None]
  - COUGH [None]
  - BODY TEMPERATURE DECREASED [None]
  - RESPIRATORY DISORDER [None]
  - PULMONARY MASS [None]
  - PRODUCTIVE COUGH [None]
  - FATIGUE [None]
  - INCREASED VISCOSITY OF BRONCHIAL SECRETION [None]
  - WHEEZING [None]
  - HEADACHE [None]
